FAERS Safety Report 6113071-1 (Version None)
Quarter: 2009Q1

REPORT INFORMATION
  Report Type: 
  Country: None (occurrence: None)
  Receive Date: 20090312
  Receipt Date: 20090226
  Transmission Date: 20090719
  Serious: Yes (Hospitalization)
  Sender: FDA-Public Use
  Company Number: DE-WATSON-2009-01480

PATIENT
  Age: 38 Year
  Sex: Male

DRUGS (1)
  1. OXYTROL [Suspect]
     Indication: BLADDER SPASM
     Dosage: 15 MG, DAILY
     Route: 065

REACTIONS (8)
  - AGITATION [None]
  - APRAXIA [None]
  - DELIRIUM [None]
  - DISORIENTATION [None]
  - HALLUCINATION, TACTILE [None]
  - HALLUCINATIONS, MIXED [None]
  - PERSECUTORY DELUSION [None]
  - SOMNOLENCE [None]
